FAERS Safety Report 9962299 (Version 1)
Quarter: 2014Q1

REPORT INFORMATION
  Report Type: Report from Study
  Country: US (occurrence: US)
  Receive Date: 20140305
  Receipt Date: 20140305
  Transmission Date: 20141002
  Serious: No
  Sender: FDA-Public Use
  Company Number: US-ABBVIE-13P-163-1116225-00

PATIENT
  Age: 40 Year
  Sex: Female

DRUGS (17)
  1. HUMIRA [Suspect]
     Indication: PSORIATIC ARTHROPATHY
     Dosage: LOADING DOSE
     Dates: start: 20130701
  2. PROPANOLOL [Concomitant]
     Indication: BLOOD PRESSURE
  3. PROPANOLOL [Concomitant]
     Indication: TREMOR
  4. COLONOZAPAM [Concomitant]
     Indication: ANXIETY
  5. CYMBALTA [Concomitant]
     Indication: PAIN
  6. OMEPRAZOLE [Concomitant]
     Indication: GASTRIC ULCER
     Dosage: 20 MG DAILY
  7. SYNTHROID [Concomitant]
     Indication: PRODUCT USED FOR UNKNOWN INDICATION
     Dosage: 125 MCG DAILY
  8. SYNTHROID [Concomitant]
     Indication: HYPOTHYROIDISM
  9. SULFASALAZINE [Concomitant]
     Indication: ARTHRITIS
  10. RITALIN [Concomitant]
     Indication: ATTENTION DEFICIT/HYPERACTIVITY DISORDER
  11. IBUPROFEN [Concomitant]
     Indication: ARTHRALGIA
  12. PRO-AIR [Concomitant]
     Indication: ASTHMA
     Dosage: TWICE DAILY
  13. ALBUTEROL [Concomitant]
     Indication: ASTHMA
  14. BREATHING TREATMENTS [Concomitant]
     Indication: ASTHMA
  15. VITAMIN D [Concomitant]
     Indication: PRODUCT USED FOR UNKNOWN INDICATION
     Dosage: 4000 MG DAILY
  16. CLARITIN [Concomitant]
     Indication: HYPERSENSITIVITY
     Dosage: DAILY
  17. EQUATE DAYTIME SINUS CONGESTION [Concomitant]
     Indication: SINUS CONGESTION
     Dosage: DAILY

REACTIONS (5)
  - Fatigue [Not Recovered/Not Resolved]
  - Dry mouth [Not Recovered/Not Resolved]
  - Abnormal behaviour [Not Recovered/Not Resolved]
  - Speech disorder [Not Recovered/Not Resolved]
  - Apathy [Not Recovered/Not Resolved]
